FAERS Safety Report 8726814 (Version 3)
Quarter: 2012Q4

REPORT INFORMATION
  Report Type: 
  Country: FI (occurrence: FI)
  Receive Date: 20120816
  Receipt Date: 20120910
  Transmission Date: 20130627
  Serious: Yes (Hospitalization)
  Sender: FDA-Public Use
  Company Number: FI-ROCHE-1098476

PATIENT
  Age: 50 None
  Sex: Male

DRUGS (1)
  1. ZELBORAF [Suspect]
     Indication: METASTATIC MALIGNANT MELANOMA
     Dosage: 4+ 4 tablets
     Route: 048
     Dates: start: 20120726, end: 20120806

REACTIONS (1)
  - Pneumonia [Recovering/Resolving]
